FAERS Safety Report 19955035 (Version 2)
Quarter: 2021Q4

REPORT INFORMATION
  Report Type: Spontaneous
  Country: JP (occurrence: JP)
  Receive Date: 20211014
  Receipt Date: 20211118
  Transmission Date: 20220303
  Serious: Yes (Other)
  Sender: FDA-Public Use
  Company Number: JP-PFIZER INC-202101283340

PATIENT
  Age: 69 Year
  Sex: Male
  Weight: 69.5 kg

DRUGS (6)
  1. AMLODIPINE BESYLATE [Suspect]
     Active Substance: AMLODIPINE BESYLATE
     Dosage: 2 DF, 1X/DAY
  2. OLMESARTAN MEDOXOMIL [Suspect]
     Active Substance: OLMESARTAN MEDOXOMIL
     Indication: Blood pressure management
     Dosage: 1 DF, 1X/DAY (20MG)
     Route: 048
  3. OLMESARTAN MEDOXOMIL [Suspect]
     Active Substance: OLMESARTAN MEDOXOMIL
     Dosage: 1 DF, 1X/DAY (100MG)
     Route: 048
  4. KEYTRUDA [Concomitant]
     Active Substance: PEMBROLIZUMAB
     Indication: Renal cell carcinoma
     Dosage: 200 MG, CYCLIC
     Route: 041
     Dates: start: 20210602
  5. INLYTA [Concomitant]
     Active Substance: AXITINIB
     Indication: Renal cell carcinoma
     Dosage: 24 MG, 1X/DAY
     Route: 048
     Dates: start: 20210602
  6. ATORVASTATIN CALCIUM TRIHYDRATE [Concomitant]
     Active Substance: ATORVASTATIN CALCIUM TRIHYDRATE
     Dosage: 1 DF, 1X/DAY

REACTIONS (2)
  - Blood pressure inadequately controlled [Recovered/Resolved]
  - Blood corticotrophin increased [Unknown]

NARRATIVE: CASE EVENT DATE: 20210621
